FAERS Safety Report 6177756-3 (Version None)
Quarter: 2009Q2

REPORT INFORMATION
  Report Type: 
  Country: None (occurrence: None)
  Receive Date: 20090501
  Receipt Date: 20090501
  Transmission Date: 20091009
  Serious: Yes (Life-Threatening)
  Sender: FDA-Public Use
  Company Number: None

PATIENT
  Age: 86 Year
  Sex: Female
  Weight: 61 kg

DRUGS (9)
  1. HEPARIN [Suspect]
     Indication: PROPHYLAXIS
     Dosage: 500-600 UNITS/HR IV
     Route: 042
     Dates: start: 20090310, end: 20090316
  2. LANSOPRAZOLE [Concomitant]
  3. ASPIRIN [Concomitant]
  4. ENALAPRIL MALEATE [Concomitant]
  5. SENNA [Concomitant]
  6. ATORVASTATIN [Concomitant]
  7. INSULIN [Concomitant]
  8. DOCUSATE [Concomitant]
  9. CEFAZOLIN [Concomitant]

REACTIONS (1)
  - HEPARIN-INDUCED THROMBOCYTOPENIA [None]
